FAERS Safety Report 16093009 (Version 1)
Quarter: 2019Q1

REPORT INFORMATION
  Report Type: Spontaneous
  Country: GB (occurrence: GB)
  Receive Date: 20190320
  Receipt Date: 20190320
  Transmission Date: 20190418
  Serious: Yes (Disabling, Other)
  Sender: FDA-Public Use
  Company Number: GB-ACCORD-113566

PATIENT
  Age: 67 Year
  Sex: Male
  Weight: 76 kg

DRUGS (10)
  1. DOXYCYCLINE. [Concomitant]
     Active Substance: DOXYCYCLINE
     Dosage: TWO NOW, THEN ONE DAILY
     Dates: start: 20181026, end: 20181102
  2. MIRTAZAPINE. [Concomitant]
     Active Substance: MIRTAZAPINE
     Dosage: AT NIGHT.
     Dates: start: 20181022
  3. LOSARTAN. [Concomitant]
     Active Substance: LOSARTAN
     Dates: start: 20180626
  4. DIAZEPAM. [Concomitant]
     Active Substance: DIAZEPAM
     Dosage: TAKE ONE OR TWO UP TO THREE TIMES DAILY.
     Dates: start: 20181029
  5. METFORMIN [Concomitant]
     Active Substance: METFORMIN HYDROCHLORIDE
     Dates: start: 20180926
  6. ATORVASTATIN/ATORVASTATIN CALCIUM [Suspect]
     Active Substance: ATORVASTATIN CALCIUM
     Indication: PRODUCT USED FOR UNKNOWN INDICATION
     Dates: start: 20181107
  7. DOXAZOSIN [Concomitant]
     Active Substance: DOXAZOSIN\DOXAZOSIN MESYLATE
     Dosage: IN THE MORNING.
     Dates: start: 20180626
  8. ATORVASTATIN [Concomitant]
     Active Substance: ATORVASTATIN
     Dates: start: 20180626
  9. SUKKARTO [Concomitant]
     Active Substance: METFORMIN HYDROCHLORIDE
     Dates: start: 20180626, end: 20181023
  10. LERCANIDIPINE [Concomitant]
     Active Substance: LERCANIDIPINE
     Dates: start: 20180626

REACTIONS (1)
  - Polymyositis [Unknown]

NARRATIVE: CASE EVENT DATE: 20181107
